FAERS Safety Report 7636007-0 (Version None)
Quarter: 2011Q3

REPORT INFORMATION
  Report Type: 
  Country: None (occurrence: None)
  Receive Date: 20110726
  Receipt Date: 20110719
  Transmission Date: 20111222
  Serious: Yes (Death)
  Sender: FDA-Public Use
  Company Number: FR-ROCHE-775963

PATIENT
  Sex: Male
  Weight: 60 kg

DRUGS (5)
  1. PREDNISONE [Suspect]
     Route: 048
  2. ACTEMRA [Suspect]
     Indication: CASTLEMAN'S DISEASE
     Route: 065
     Dates: start: 20110421, end: 20110421
  3. VALACYCLOVIR HYDROCHLORIDE [Suspect]
     Indication: HERPES ZOSTER
     Route: 065
  4. ATOVAQUONE [Suspect]
     Indication: ANTIFUNGAL PROPHYLAXIS
     Route: 065
  5. NEORECORMON [Concomitant]

REACTIONS (3)
  - MULTI-ORGAN FAILURE [None]
  - SEPTIC SHOCK [None]
  - ACUTE HEPATIC FAILURE [None]
